FAERS Safety Report 5893569-1 (Version None)
Quarter: 2008Q3

REPORT INFORMATION
  Report Type: 
  Country: None (occurrence: None)
  Receive Date: 20080919
  Receipt Date: 20080904
  Transmission Date: 20090109
  Serious: Yes (Hospitalization)
  Sender: FDA-Public Use
  Company Number: 2008SP018229

PATIENT
  Age: 3 Year
  Sex: Female

DRUGS (2)
  1. DESLORATADINE [Suspect]
     Indication: RHINITIS ALLERGIC
     Dosage: 2.5 ML; QD; PO
     Route: 048
     Dates: start: 20080701, end: 20080701
  2. DESLORATADINE [Suspect]
     Indication: RHINITIS ALLERGIC
     Dosage: 2.5 ML; QD; PO
     Route: 048
     Dates: start: 20080901, end: 20080903

REACTIONS (3)
  - AGITATION [None]
  - HALLUCINATION, VISUAL [None]
  - MYDRIASIS [None]
